FAERS Safety Report 25670278 (Version 1)
Quarter: 2025Q3

REPORT INFORMATION
  Report Type: Spontaneous
  Country: AU (occurrence: AU)
  Receive Date: 20250812
  Receipt Date: 20250812
  Transmission Date: 20251020
  Serious: Yes (Other)
  Sender: ACCORD
  Company Number: None

PATIENT
  Age: 66 Year
  Sex: Female

DRUGS (58)
  1. DOCETAXEL [Suspect]
     Active Substance: DOCETAXEL
     Indication: Product used for unknown indication
  2. DOXORUBICIN [Suspect]
     Active Substance: DOXORUBICIN
     Indication: Product used for unknown indication
  3. BLEOMYCIN SULFATE [Suspect]
     Active Substance: BLEOMYCIN SULFATE
     Indication: Product used for unknown indication
  4. CAPECITABINE [Suspect]
     Active Substance: CAPECITABINE
     Indication: Product used for unknown indication
  5. CARBOXYMETHYLCELLULOSE SODIUM [Suspect]
     Active Substance: CARBOXYMETHYLCELLULOSE SODIUM
     Indication: Product used for unknown indication
  6. DENOSUMAB [Suspect]
     Active Substance: DENOSUMAB
     Indication: Product used for unknown indication
  7. DOXIL [Suspect]
     Active Substance: DOXORUBICIN HYDROCHLORIDE
     Indication: Product used for unknown indication
  8. FASLODEX [Suspect]
     Active Substance: FULVESTRANT
     Indication: Product used for unknown indication
  9. FULVESTRANT [Suspect]
     Active Substance: FULVESTRANT
     Indication: Product used for unknown indication
  10. KADCYLA [Suspect]
     Active Substance: ADO-TRASTUZUMAB EMTANSINE
     Indication: Product used for unknown indication
  11. LAPATINIB [Suspect]
     Active Substance: LAPATINIB
     Indication: Product used for unknown indication
  12. ACETAMINOPHEN [Suspect]
     Active Substance: ACETAMINOPHEN
     Indication: Product used for unknown indication
  13. PEGFILGRASTIM [Suspect]
     Active Substance: PEGFILGRASTIM
     Indication: Product used for unknown indication
  14. NAVELBINE [Suspect]
     Active Substance: VINORELBINE TARTRATE
     Indication: Product used for unknown indication
  15. PERJETA [Suspect]
     Active Substance: PERTUZUMAB
     Indication: Product used for unknown indication
  16. PERTUZUMAB [Suspect]
     Active Substance: PERTUZUMAB
     Indication: Product used for unknown indication
  17. TRASTUZUMAB [Suspect]
     Active Substance: TRASTUZUMAB
     Indication: Product used for unknown indication
  18. TRASTUZUMAB DERUXTECAN [Suspect]
     Active Substance: TRASTUZUMAB DERUXTECAN
     Indication: Product used for unknown indication
  19. ADO-TRASTUZUMAB EMTANSINE [Suspect]
     Active Substance: ADO-TRASTUZUMAB EMTANSINE
     Indication: Product used for unknown indication
  20. TRASTUZUMAB DERUXTECAN [Suspect]
     Active Substance: TRASTUZUMAB DERUXTECAN
     Indication: Product used for unknown indication
  21. TUCATINIB [Suspect]
     Active Substance: TUCATINIB
     Indication: Product used for unknown indication
  22. TAXOTERE [Suspect]
     Active Substance: DOCETAXEL
     Indication: Product used for unknown indication
  23. XELODA [Suspect]
     Active Substance: CAPECITABINE
     Indication: Product used for unknown indication
  24. XGEVA [Suspect]
     Active Substance: DENOSUMAB
     Indication: Product used for unknown indication
  25. VINORELBINE [Suspect]
     Active Substance: VINORELBINE TARTRATE
     Indication: Product used for unknown indication
  26. ALPRAZOLAM [Concomitant]
     Active Substance: ALPRAZOLAM
  27. BETAMETHASONE DIPROPIONATE [Concomitant]
     Active Substance: BETAMETHASONE DIPROPIONATE
  28. BUTYLSCOPOLAMINE BROMIDE [Concomitant]
     Active Substance: BUTYLSCOPOLAMINE BROMIDE
  29. AMOXICILLIN\CLAVULANATE POTASSIUM [Concomitant]
     Active Substance: AMOXICILLIN\CLAVULANATE POTASSIUM
  30. DEXAMETHASONE [Concomitant]
     Active Substance: DEXAMETHASONE
  31. DROPERIDOL [Concomitant]
     Active Substance: DROPERIDOL
  32. EMEND [Concomitant]
     Active Substance: APREPITANT
  33. FILGRASTIM [Concomitant]
     Active Substance: FILGRASTIM
  34. LAPATINIB [Concomitant]
     Active Substance: LAPATINIB
     Indication: Product used for unknown indication
  35. LOVENOX [Concomitant]
     Active Substance: ENOXAPARIN SODIUM
  36. POLYETHYLENE GLYCOL 3350\POTASSIUM CHLORIDE\SODIUM BICARBONATE\SODIUM [Concomitant]
     Active Substance: POLYETHYLENE GLYCOL 3350\POTASSIUM CHLORIDE\SODIUM BICARBONATE\SODIUM CHLORIDE
  37. ONDANSETRON [Concomitant]
     Active Substance: ONDANSETRON
  38. PARACODIN [Concomitant]
  39. PEGFILGRASTIM [Concomitant]
     Active Substance: PEGFILGRASTIM
  40. OLIVE OIL [Concomitant]
     Active Substance: OLIVE OIL
  41. FENTANYL [Concomitant]
     Active Substance: FENTANYL
  42. FUROSEMIDE [Concomitant]
     Active Substance: FUROSEMIDE
  43. HYDROMORPHONE HYDROCHLORIDE [Concomitant]
     Active Substance: HYDROMORPHONE HYDROCHLORIDE
  44. BUTYLSCOPOLAMINE BROMIDE [Concomitant]
     Active Substance: BUTYLSCOPOLAMINE BROMIDE
  45. LACTULOSE [Concomitant]
     Active Substance: LACTULOSE
  46. LEVOTHYROXINE [Concomitant]
     Active Substance: LEVOTHYROXINE
  47. LORAZEPAM [Concomitant]
     Active Substance: LORAZEPAM
  48. PANTOPRAZOLE SODIUM [Concomitant]
     Active Substance: PANTOPRAZOLE SODIUM
  49. ACETAMINOPHEN [Concomitant]
     Active Substance: ACETAMINOPHEN
  50. POTASSIUM CHLORIDE [Concomitant]
     Active Substance: POTASSIUM CHLORIDE
  51. POVIDONE-IODINE [Concomitant]
     Active Substance: POVIDONE-IODINE
  52. PREGABALIN [Concomitant]
     Active Substance: PREGABALIN
  53. RETINOL [Concomitant]
     Active Substance: RETINOL
  54. SODIUM CHLORIDE [Concomitant]
     Active Substance: SODIUM CHLORIDE
  55. TRAZODONE HYDROCHLORIDE [Concomitant]
     Active Substance: TRAZODONE HYDROCHLORIDE
  56. TRIMETHOPRIM [Concomitant]
     Active Substance: TRIMETHOPRIM
  57. VITAMIN C [Concomitant]
     Active Substance: ASCORBIC ACID
  58. ZOFRAN [Concomitant]
     Active Substance: ONDANSETRON HYDROCHLORIDE

REACTIONS (21)
  - Back pain [Unknown]
  - Pseudomonal sepsis [Unknown]
  - Streptococcal sepsis [Unknown]
  - Sepsis [Unknown]
  - Metastases to central nervous system [Unknown]
  - Metastases to lymph nodes [Unknown]
  - Brain oedema [Unknown]
  - Vascular device infection [Unknown]
  - C-reactive protein increased [Unknown]
  - Candida infection [Unknown]
  - Eczema [Unknown]
  - Fatigue [Unknown]
  - Nail bed inflammation [Unknown]
  - Nasal mucosal disorder [Unknown]
  - Nausea [Unknown]
  - Paronychia [Unknown]
  - Pleural effusion [Unknown]
  - Restlessness [Unknown]
  - Skin fissures [Unknown]
  - Varicose vein [Unknown]
  - Vomiting [Unknown]
